FAERS Safety Report 21606110 (Version 1)
Quarter: 2022Q4

REPORT INFORMATION
  Report Type: Spontaneous
  Country: US (occurrence: US)
  Receive Date: 20221117
  Receipt Date: 20221117
  Transmission Date: 20230113
  Serious: No
  Sender: FDA-Public Use
  Company Number: US-drreddys-SPO/USA/22/0156851

PATIENT
  Age: 18 Year

DRUGS (1)
  1. ZENATANE [Suspect]
     Active Substance: ISOTRETINOIN
     Indication: Acne
     Dosage: RMA ISSUE DATE: 05/APRIL/2022 06:48:13 PM, 21/JUNE/2022 08:57:18 PM, 26/JULY/2022 11:45:02 AM

REACTIONS (1)
  - Alanine aminotransferase increased [Unknown]
